FAERS Safety Report 8830025 (Version 1)
Quarter: 2012Q4

REPORT INFORMATION
  Report Type: 
  Country: JP (occurrence: JP)
  Receive Date: 20121008
  Receipt Date: 20121008
  Transmission Date: 20130627
  Serious: Yes (Life-Threatening)
  Sender: FDA-Public Use
  Company Number: JP-ASTRAZENECA-2012SE76434

PATIENT

DRUGS (1)
  1. XYLOCAINE [Suspect]
     Route: 065

REACTIONS (1)
  - Cardio-respiratory arrest [Unknown]
